FAERS Safety Report 12949791 (Version 1)
Quarter: 2016Q4

REPORT INFORMATION
  Report Type: Spontaneous
  Country: US (occurrence: US)
  Receive Date: 20161117
  Receipt Date: 20161117
  Transmission Date: 20170207
  Serious: No
  Sender: FDA-Public Use
  Company Number: US-BAUSCH-BL-2016-011297

PATIENT
  Age: 23 Year
  Sex: Female
  Weight: 90.8 kg

DRUGS (1)
  1. LOTEMAX [Suspect]
     Active Substance: LOTEPREDNOL ETABONATE
     Indication: EYE INFLAMMATION
     Route: 047
     Dates: start: 20160425

REACTIONS (2)
  - Drug dose omission [Unknown]
  - Eye pain [Unknown]

NARRATIVE: CASE EVENT DATE: 20160510
